FAERS Safety Report 9187829 (Version 1)
Quarter: 2013Q1

REPORT INFORMATION
  Report Type: Spontaneous
  Country: None (occurrence: US)
  Receive Date: 20130325
  Receipt Date: 20130325
  Transmission Date: 20140127
  Serious: No
  Sender: FDA-Public Use
  Company Number: -MYLANLABS-2012S1011059

PATIENT
  Age: 82 Year
  Sex: Female
  Weight: 70 kg

DRUGS (4)
  1. FENTANYL TRANSDERMAL SYSTEM [Suspect]
     Indication: PAIN
     Dosage: Q72 HOURS
     Route: 062
     Dates: start: 20120503, end: 20120518
  2. FENTANYL TRANSDERMAL SYSTEM [Suspect]
     Indication: PAIN
     Dosage: Q72 HOURS
     Route: 062
     Dates: start: 20120503, end: 20120518
  3. FENTANYL TRANSDERMAL SYSTEM [Suspect]
     Indication: PAIN
     Dosage: Q 72 HOURS
     Route: 062
     Dates: start: 20120418
  4. FENTANYL TRANSDERMAL SYSTEM [Suspect]
     Indication: PAIN
     Dosage: Q 72 HOURS
     Route: 062
     Dates: start: 20120418

REACTIONS (5)
  - Hallucination [Recovering/Resolving]
  - Delusion [Recovering/Resolving]
  - Therapy change [Recovering/Resolving]
  - Abnormal behaviour [Recovering/Resolving]
  - Balance disorder [Recovering/Resolving]
